FAERS Safety Report 10272460 (Version 1)
Quarter: 2014Q2

REPORT INFORMATION
  Report Type: Spontaneous
  Country: TR (occurrence: None)
  Receive Date: 20140627
  Receipt Date: 20140627
  Transmission Date: 20141212
  Serious: Yes (Hospitalization, Other)
  Sender: FDA-Public Use
  Company Number: 2014COR00015

PATIENT
  Age: 78 Year
  Sex: Male

DRUGS (1)
  1. MELOXICAM (MELOXICAM) UNKNOWN [Suspect]
     Indication: BACK PAIN

REACTIONS (8)
  - Hyponatraemia [None]
  - Mental status changes [None]
  - Headache [None]
  - Nausea [None]
  - Dysarthria [None]
  - Altered state of consciousness [None]
  - Apathy [None]
  - Disorientation [None]
